FAERS Safety Report 9195686 (Version 3)
Quarter: 2013Q4

REPORT INFORMATION
  Report Type: Spontaneous
  Country: US (occurrence: None)
  Receive Date: 20120703
  Receipt Date: 20131226
  Transmission Date: 20140711
  Serious: Yes (Hospitalization)
  Sender: FDA-Public Use
  Company Number: PHEH2012US009130

PATIENT
  Age: 62 Year
  Sex: Female
  Weight: 53.5 kg

DRUGS (17)
  1. GILENYA [Suspect]
     Indication: RELAPSING-REMITTING MULTIPLE SCLEROSIS
     Route: 048
     Dates: start: 20120403
  2. ALBUTEROL [Concomitant]
  3. CITALOPRAM (CITALOPRAM) [Concomitant]
  4. ALENDRONIC ACID (ALENDRONIC ACID) [Concomitant]
  5. IBUPROFEN (IBUPROFEN) [Concomitant]
  6. TICLOPIDINE HYDROCHLORIDE [Concomitant]
  7. RESTORIL [Concomitant]
  8. ASA [Concomitant]
  9. LISINOPRIL (LISINOPRIL) [Concomitant]
  10. ZOCOR (SIMVASTATIN) [Concomitant]
  11. SYNTHROID (LEVOTHYROXINE SODIUM) [Concomitant]
  12. XANAX [Concomitant]
  13. ZEBETA [Concomitant]
  14. BENADRYL [Concomitant]
  15. METFORMIN (METFORMIN) [Concomitant]
  16. BISOPROLOL FUMARATE [Concomitant]
  17. NITROGLYCERIN (GLYCERYL TRINITRATE) SPRAY [Concomitant]

REACTIONS (2)
  - Lethargy [None]
  - Fatigue [None]
